FAERS Safety Report 13346368 (Version 1)
Quarter: 2017Q1

REPORT INFORMATION
  Report Type: Spontaneous
  Country: US (occurrence: US)
  Receive Date: 20170317
  Receipt Date: 20170317
  Transmission Date: 20170428
  Serious: No
  Sender: FDA-Public Use
  Company Number: US-DEPOMED, INC.-US-2016DEP009308

PATIENT

DRUGS (10)
  1. GRALISE [Suspect]
     Active Substance: GABAPENTIN
     Dosage: 900 MG, QD
     Route: 048
     Dates: start: 2015, end: 2015
  2. NORCO [Concomitant]
     Active Substance: ACETAMINOPHEN\HYDROCODONE BITARTRATE
     Indication: PAIN
     Dosage: 5/325 MG, BID
     Route: 048
  3. GRALISE [Suspect]
     Active Substance: GABAPENTIN
     Indication: FIBROMYALGIA
     Dosage: 1200 MG ALTERNATING WITH 900 MG, QD
     Route: 048
     Dates: end: 2016
  4. GRALISE [Suspect]
     Active Substance: GABAPENTIN
     Dosage: 300 MG, QD
     Route: 048
     Dates: start: 201509, end: 2015
  5. GRALISE [Suspect]
     Active Substance: GABAPENTIN
     Dosage: 1500 MG, QD
     Route: 048
     Dates: start: 2015
  6. ZOLPIDEM [Concomitant]
     Active Substance: ZOLPIDEM\ZOLPIDEM TARTRATE
     Indication: SLEEP DISORDER
     Dosage: 10 MG, QD
     Route: 048
  7. GRALISE [Suspect]
     Active Substance: GABAPENTIN
     Dosage: 1200 MG, QD
     Route: 048
     Dates: start: 2015, end: 2015
  8. ATORVASTATIN [Concomitant]
     Active Substance: ATORVASTATIN
     Indication: BLOOD CHOLESTEROL INCREASED
     Dosage: 20 MG, QD
     Route: 048
  9. GRALISE [Suspect]
     Active Substance: GABAPENTIN
     Dosage: 1800 MG, QD
     Route: 048
  10. GRALISE [Suspect]
     Active Substance: GABAPENTIN
     Dosage: 600 MG, QD
     Route: 048
     Dates: start: 2015, end: 2015

REACTIONS (2)
  - Inappropriate schedule of drug administration [Not Recovered/Not Resolved]
  - Product use issue [Recovered/Resolved]
